FAERS Safety Report 25339675 (Version 1)
Quarter: 2025Q2

REPORT INFORMATION
  Report Type: Report from Study
  Country: US (occurrence: US)
  Receive Date: 20250521
  Receipt Date: 20250521
  Transmission Date: 20250717
  Serious: Yes (Other)
  Sender: ACADIA PHARMACEUTICALS
  Company Number: US-ACADIA PHARMACEUTICALS INC.-ACA-2025-TRF-005920

PATIENT
  Sex: Male

DRUGS (1)
  1. DAYBUE [Suspect]
     Active Substance: TROFINETIDE
     Indication: Rett syndrome
     Dosage: 40 MILLILITER, BID
     Route: 048

REACTIONS (5)
  - Self-destructive behaviour [Recovering/Resolving]
  - Illness [Not Recovered/Not Resolved]
  - Headache [Recovered/Resolved]
  - Aggression [Recovering/Resolving]
  - Inappropriate schedule of product administration [Not Recovered/Not Resolved]
